FAERS Safety Report 7288621 (Version 2)
Quarter: 2014Q1

REPORT INFORMATION
  Report Type: Spontaneous
  Country: US (occurrence: None)
  Receive Date: 20100202
  Receipt Date: 20140122
  Transmission Date: 20141002
  Serious: Yes (Hospitalization, Other)
  Sender: FDA-Public Use
  Company Number: 2010S1000303

PATIENT
  Age: 65 Year
  Sex: Female
  Weight: 72.58 kg

DRUGS (6)
  1. FLEET PHOSPHO-SODA ORAL SALINE LAXATIVE, GINGER-LEMON FLAVOR [Suspect]
     Indication: COLONOSCOPY
     Dosage: ML, 2 IN 24 HOURS, ORAL
     Route: 048
     Dates: start: 20080629, end: 20080630
  2. DULCOLAX [Suspect]
     Indication: COLONOSCOPY
     Dosage: UNKNOWN, 3 IN 24 HOURS, ORAL
     Route: 048
     Dates: start: 20080629, end: 20080629
  3. ZESTORETIC (HYDROCHLOROTHIAZIDE , LISINOPRIL) [Concomitant]
  4. CALCIUM WITH VITAMIN D (CALCIUM CARBONATE, VITAMIN D NOS0 [Concomitant]
  5. MULTIVITAMIN (ERGOCALCIFEROL, ASCORBIC ACID, PYRIDOXINE HYDORCHLORIDE, THIAMINE HYDROCHLORIDE, RETINOL, RIBOFLAVIN, NICOTINAMIDE, CALCIUM PANTOTHENATE) [Concomitant]
  6. CRANBERY CAPSULE (VACCINIUM MACROCARPON) [Concomitant]

REACTIONS (11)
  - Nausea [None]
  - Vomiting [None]
  - Urinary tract infection [None]
  - Asthenia [None]
  - Pneumonia [None]
  - Dehydration [None]
  - Hyponatraemia [None]
  - Hypokalaemia [None]
  - Renal failure acute [None]
  - Pyrexia [None]
  - Diverticulum [None]
